FAERS Safety Report 11256559 (Version 1)
Quarter: 2015Q3

REPORT INFORMATION
  Report Type: Spontaneous
  Country: US (occurrence: US)
  Receive Date: 20150709
  Receipt Date: 20150709
  Transmission Date: 20151125
  Serious: No
  Sender: FDA-Public Use
  Company Number: US-PURDUE-USA-2014-0117148

PATIENT
  Sex: Female

DRUGS (2)
  1. BUTRANS [Suspect]
     Active Substance: BUPRENORPHINE
     Indication: PRODUCT USED FOR UNKNOWN INDICATION
     Dosage: 10 MCG/HR, WEEKLY
     Route: 062
  2. BUTRANS [Suspect]
     Active Substance: BUPRENORPHINE
     Dosage: 15 MCG/HR, UNK
     Route: 062

REACTIONS (8)
  - Application site discolouration [Not Recovered/Not Resolved]
  - Product adhesion issue [Unknown]
  - Pruritus [Unknown]
  - Somnolence [Unknown]
  - Feeling abnormal [Unknown]
  - Application site irritation [Not Recovered/Not Resolved]
  - Drug effect increased [Unknown]
  - Blister [Unknown]

NARRATIVE: CASE EVENT DATE: 201407
